FAERS Safety Report 15367290 (Version 2)
Quarter: 2018Q3

REPORT INFORMATION
  Report Type: Spontaneous
  Country: JP (occurrence: JP)
  Receive Date: 20180910
  Receipt Date: 20180920
  Transmission Date: 20181010
  Serious: Yes (Other)
  Sender: FDA-Public Use
  Company Number: JP-SAKK-2018SA241988AA

PATIENT
  Age: 6 Decade
  Sex: Female

DRUGS (8)
  1. DESLORATADINE. [Concomitant]
     Active Substance: DESLORATADINE
     Indication: PRURITUS
     Route: 065
  2. XYZAL [Concomitant]
     Active Substance: LEVOCETIRIZINE DIHYDROCHLORIDE
     Indication: PRURITUS
     Route: 065
  3. ZEBIAX [OZENOXACIN] [Concomitant]
     Indication: SKIN INFECTION
     Route: 065
  4. DEPAS [ETIZOLAM] [Concomitant]
     Active Substance: ETIZOLAM
     Indication: PRODUCT USED FOR UNKNOWN INDICATION
     Route: 065
  5. FLOMOX [CEFCAPENE PIVOXIL HYDROCHLORIDE] [Concomitant]
     Indication: INFECTION
     Route: 065
  6. ACUATIM [Concomitant]
     Active Substance: NADIFLOXACIN
     Indication: SKIN INFECTION
     Route: 065
  7. DUPIXENT [Suspect]
     Active Substance: DUPILUMAB
     Indication: DERMATITIS ATOPIC
     Dosage: 300 MG, UNK
     Route: 058
     Dates: start: 20180706
  8. BETAMETHASONE. [Concomitant]
     Active Substance: BETAMETHASONE
     Indication: DERMATITIS ATOPIC
     Route: 065

REACTIONS (6)
  - Skin exfoliation [Recovering/Resolving]
  - Skin exfoliation [Recovering/Resolving]
  - Eosinophilia [Not Recovered/Not Resolved]
  - Dermatitis atopic [Recovering/Resolving]
  - Dermatitis exfoliative [Recovering/Resolving]
  - Rash [Recovering/Resolving]

NARRATIVE: CASE EVENT DATE: 201807
